FAERS Safety Report 5377300-4 (Version None)
Quarter: 2007Q3

REPORT INFORMATION
  Report Type: 
  Country: None (occurrence: None)
  Receive Date: 20070703
  Receipt Date: 20070626
  Transmission Date: 20080115
  Serious: Yes (Other)
  Sender: FDA-Public Use
  Company Number: US-ASTRAZENECA-2007UW15220

PATIENT
  Age: 24 Year
  Sex: Female
  Weight: 72.6 kg

DRUGS (2)
  1. SEROQUEL [Suspect]
     Indication: BIPOLAR I DISORDER
     Route: 048
     Dates: start: 20070501
  2. LAMICTAL [Concomitant]

REACTIONS (6)
  - DEPENDENCE [None]
  - DRUG DEPENDENCE [None]
  - HEADACHE [None]
  - MEDICATION ERROR [None]
  - SUICIDAL IDEATION [None]
  - UNEVALUABLE EVENT [None]
